FAERS Safety Report 8288939-0 (Version None)
Quarter: 2012Q2

REPORT INFORMATION
  Report Type: 
  Country: None (occurrence: None)
  Receive Date: 20120412
  Receipt Date: 20120402
  Transmission Date: 20120825
  Serious: Yes (Hospitalization)
  Sender: FDA-Public Use
  Company Number: TPA2012A01838

PATIENT
  Sex: Female

DRUGS (1)
  1. PREVACID [Suspect]
     Indication: GASTROINTESTINAL DISORDER
     Dosage: 30 MG, 1 IN 1 D, PER ORAL
     Route: 048

REACTIONS (2)
  - TRANSIENT ISCHAEMIC ATTACK [None]
  - FALL [None]
